FAERS Safety Report 8873262 (Version 1)
Quarter: 2012Q4

REPORT INFORMATION
  Report Type: 
  Country: US (occurrence: US)
  Receive Date: 20121029
  Receipt Date: 20121029
  Transmission Date: 20130627
  Serious: Yes (Other)
  Sender: FDA-Public Use
  Company Number: US-PFIZER INC-2012267179

PATIENT
  Age: 50 Year
  Sex: Female
  Weight: 66.67 kg

DRUGS (3)
  1. XANAX [Suspect]
     Indication: SLEEP DIFFICULT
     Dosage: 1 mg, 4x/day
     Route: 048
     Dates: start: 1987
  2. XANAX [Suspect]
     Indication: IRRITABLE BOWEL SYNDROME
  3. DURAGESIC [Concomitant]
     Dosage: UNK

REACTIONS (1)
  - Back disorder [Unknown]
